FAERS Safety Report 25155816 (Version 1)
Quarter: 2025Q2

REPORT INFORMATION
  Report Type: Spontaneous
  Country: US (occurrence: US)
  Receive Date: 20250403
  Receipt Date: 20250403
  Transmission Date: 20250716
  Serious: Yes (Other)
  Sender: DR REDDYS
  Company Number: None

PATIENT
  Age: 55 Year
  Sex: Male

DRUGS (20)
  1. CYCLOPHOSPHAMIDE [Suspect]
     Active Substance: CYCLOPHOSPHAMIDE
     Indication: Diffuse large B-cell lymphoma
  2. CYCLOPHOSPHAMIDE [Suspect]
     Active Substance: CYCLOPHOSPHAMIDE
     Indication: Metastases to heart
  3. CYCLOPHOSPHAMIDE [Suspect]
     Active Substance: CYCLOPHOSPHAMIDE
     Indication: Metastases to lymph nodes
  4. CYCLOPHOSPHAMIDE [Suspect]
     Active Substance: CYCLOPHOSPHAMIDE
     Indication: Metastases to heart
  5. DOXORUBICIN [Suspect]
     Active Substance: DOXORUBICIN
     Indication: Diffuse large B-cell lymphoma
  6. DOXORUBICIN [Suspect]
     Active Substance: DOXORUBICIN
     Indication: Metastases to heart
  7. DOXORUBICIN [Suspect]
     Active Substance: DOXORUBICIN
     Indication: Metastases to heart
  8. DOXORUBICIN [Suspect]
     Active Substance: DOXORUBICIN
     Indication: Metastases to lymph nodes
  9. PREDNISOLONE [Suspect]
     Active Substance: PREDNISOLONE
     Indication: Diffuse large B-cell lymphoma
  10. PREDNISOLONE [Suspect]
     Active Substance: PREDNISOLONE
     Indication: Metastases to lymph nodes
  11. PREDNISOLONE [Suspect]
     Active Substance: PREDNISOLONE
     Indication: Metastases to heart
  12. PREDNISOLONE [Suspect]
     Active Substance: PREDNISOLONE
     Indication: Metastases to heart
  13. ETOPOSIDE [Suspect]
     Active Substance: ETOPOSIDE
     Indication: Diffuse large B-cell lymphoma
  14. ETOPOSIDE [Suspect]
     Active Substance: ETOPOSIDE
     Indication: Metastases to lymph nodes
  15. ETOPOSIDE [Suspect]
     Active Substance: ETOPOSIDE
     Indication: Metastases to heart
  16. ETOPOSIDE [Suspect]
     Active Substance: ETOPOSIDE
     Indication: Metastases to heart
  17. VINCRISTINE [Suspect]
     Active Substance: VINCRISTINE
     Indication: Diffuse large B-cell lymphoma
  18. VINCRISTINE [Suspect]
     Active Substance: VINCRISTINE
     Indication: Metastases to lymph nodes
  19. VINCRISTINE [Suspect]
     Active Substance: VINCRISTINE
     Indication: Metastases to heart
  20. VINCRISTINE [Suspect]
     Active Substance: VINCRISTINE
     Indication: Metastases to heart

REACTIONS (1)
  - Atrial fibrillation [Unknown]
